FAERS Safety Report 8074241-9 (Version None)
Quarter: 2012Q1

REPORT INFORMATION
  Report Type: 
  Country: None (occurrence: None)
  Receive Date: 20120126
  Receipt Date: 20120117
  Transmission Date: 20120608
  Serious: Yes (Congenital Anomaly)
  Sender: FDA-Public Use
  Company Number: US-ABBOTT-10P-163-0674276-00

PATIENT
  Age: 1 Day
  Sex: Female

DRUGS (4)
  1. COMBIVIR [Concomitant]
     Indication: MATERNAL EXPOSURE TIMING UNSPECIFIED
  2. RITONAVIR [Suspect]
     Indication: MATERNAL EXPOSURE TIMING UNSPECIFIED
     Route: 064
  3. DARUNAVIR [Concomitant]
     Indication: MATERNAL EXPOSURE TIMING UNSPECIFIED
     Route: 064
  4. ZIDOVUDINE [Concomitant]
     Indication: MATERNAL EXPOSURE TIMING UNSPECIFIED

REACTIONS (1)
  - FOETAL GROWTH RESTRICTION [None]
